FAERS Safety Report 21950107 (Version 6)
Quarter: 2023Q1

REPORT INFORMATION
  Report Type: Spontaneous
  Country: IT (occurrence: IT)
  Receive Date: 20230203
  Receipt Date: 20230315
  Transmission Date: 20230418
  Serious: No
  Sender: FDA-Public Use
  Company Number: IT-PFIZER INC-202300036042

PATIENT
  Age: 72 Year
  Sex: Female

DRUGS (2)
  1. ENBREL [Suspect]
     Active Substance: ETANERCEPT
     Indication: Ankylosing spondylitis
     Dosage: 2 DF, WEEKLY
     Dates: start: 2004
  2. ENBREL [Suspect]
     Active Substance: ETANERCEPT
     Dosage: 1 DF, SINGLE
     Dates: end: 202212

REACTIONS (4)
  - Expired product administered [Unknown]
  - Injection site pain [Unknown]
  - Influenza [Recovered/Resolved]
  - Product dispensing error [Unknown]

NARRATIVE: CASE EVENT DATE: 20221201
